FAERS Safety Report 18713910 (Version 3)
Quarter: 2021Q1

REPORT INFORMATION
  Report Type: Report from Study
  Country: US (occurrence: US)
  Receive Date: 20210107
  Receipt Date: 20210211
  Transmission Date: 20210419
  Serious: Yes (Hospitalization, Other)
  Sender: FDA-Public Use
  Company Number: US-GILEAD-2020-0510427

PATIENT
  Age: 72 Year
  Sex: Female
  Weight: 75.8 kg

DRUGS (30)
  1. ATORVASTATIN [Concomitant]
     Active Substance: ATORVASTATIN
     Indication: HYPERLIPIDAEMIA
     Dosage: 10 MG, QD
     Dates: start: 20200831
  2. LISINOPRIL. [Concomitant]
     Active Substance: LISINOPRIL
     Indication: HYPERTENSION
     Dosage: 10 MG, QD
     Dates: start: 20200831
  3. OXYGEN. [Concomitant]
     Active Substance: OXYGEN
     Dosage: 8L/MIN, 5L/MIN
     Route: 055
     Dates: start: 20201207
  4. FAMOTIDINE. [Concomitant]
     Active Substance: FAMOTIDINE
     Indication: GASTROOESOPHAGEAL REFLUX DISEASE
     Dosage: 20 MG
     Dates: start: 20201216
  5. REMDESIVIR. [Suspect]
     Active Substance: REMDESIVIR
     Indication: COVID-19 PNEUMONIA
     Dosage: 250 ML, QD,MOST RECENT DOSE OF RDV ON 10/DEC/2020 AT 2.42 PM AND 3.49 PM PRIOR TO SAE
     Route: 042
     Dates: start: 20201205
  6. PLACEBO [Suspect]
     Active Substance: UNSPECIFIED INGREDIENT
     Indication: COVID-19 PNEUMONIA
     Dosage: MOST RECENT DOSE OF BLINDED TOCILIZUMAB ON 05/DEC/2020 AT 6.15 PM AND 7.22 PM PRIOR TO SAE
     Route: 042
     Dates: start: 20201205
  7. BUPROPION. [Concomitant]
     Active Substance: BUPROPION
     Indication: DEPRESSION
     Dosage: 50 MG
     Dates: start: 20201207, end: 20201215
  8. OXYGEN. [Concomitant]
     Active Substance: OXYGEN
     Indication: OXYGEN THERAPY
     Dosage: 10L/MIN, 13L/MIN
     Route: 055
     Dates: start: 20201205
  9. OXYGEN. [Concomitant]
     Active Substance: OXYGEN
     Dosage: 8 L/MIN
     Route: 055
     Dates: start: 20201206
  10. BUDESONIDE. [Concomitant]
     Active Substance: BUDESONIDE
     Indication: DYSPNOEA
     Dosage: 2 PUFF
     Dates: start: 20201215, end: 20201227
  11. TORADOL [Concomitant]
     Active Substance: KETOROLAC TROMETHAMINE
     Indication: PAIN
     Dosage: 15 MG
     Dates: start: 20201217, end: 20201227
  12. ASPIRIN [ACETYLSALICYLIC ACID] [Concomitant]
     Active Substance: ASPIRIN
     Indication: CORONARY ARTERY DISEASE
  13. OMEPRAZOLE. [Concomitant]
     Active Substance: OMEPRAZOLE
     Indication: GASTROOESOPHAGEAL REFLUX DISEASE
     Dosage: 40 MG, QD
     Dates: start: 20200831
  14. DECADRON [Concomitant]
     Active Substance: DEXAMETHASONE
     Indication: COVID-19
     Dosage: 6 MG, QD
     Dates: start: 20201204, end: 20201210
  15. LOVENOX [Concomitant]
     Active Substance: ENOXAPARIN SODIUM
     Indication: HYPERLIPIDAEMIA
     Dosage: 40 MG, QD
     Dates: start: 20201204, end: 20201210
  16. BUPROPION. [Concomitant]
     Active Substance: BUPROPION
     Dosage: 150 MG
     Dates: start: 20201216
  17. OXYGEN. [Concomitant]
     Active Substance: OXYGEN
     Dosage: 3 L/MIN
     Route: 055
     Dates: start: 20201208
  18. ACETAMINOPHEN. [Concomitant]
     Active Substance: ACETAMINOPHEN
     Indication: PAIN
     Dosage: 650 MG
     Route: 065
     Dates: start: 20201204
  19. OXYGEN. [Concomitant]
     Active Substance: OXYGEN
     Dosage: 3L/MIN
     Route: 055
     Dates: start: 20201210
  20. TRAMADOL. [Concomitant]
     Active Substance: TRAMADOL
     Indication: PAIN
     Dosage: 100 MG
     Dates: start: 20201215, end: 20201227
  21. ALBUTEROL [SALBUTAMOL] [Concomitant]
     Active Substance: ALBUTEROL
     Indication: ASTHMA
     Dosage: UNK
  22. FUROSEMIDE. [Concomitant]
     Active Substance: FUROSEMIDE
     Indication: HYPERTENSION
     Dosage: 20 MG, QD
     Dates: start: 20201204, end: 20201209
  23. OXYGEN. [Concomitant]
     Active Substance: OXYGEN
     Dosage: 6L/MIN, 3L/MIN
     Route: 055
     Dates: start: 20201208
  24. OXYGEN. [Concomitant]
     Active Substance: OXYGEN
     Dosage: 2L/MIN
     Route: 055
     Dates: start: 20201218
  25. OXYGEN. [Concomitant]
     Active Substance: OXYGEN
     Dosage: 4L/MIN
     Route: 055
     Dates: start: 20201209
  26. HYDROCHLOROTHIAZIDE. [Concomitant]
     Active Substance: HYDROCHLOROTHIAZIDE
     Indication: HYPERTENSION
     Dosage: 12.5 MG, QD
     Dates: start: 20200831
  27. DOXYCYCLINE. [Concomitant]
     Active Substance: DOXYCYCLINE
     Indication: PNEUMONIA
     Dosage: 100 MG
     Dates: start: 20201205, end: 20201208
  28. OXYGEN. [Concomitant]
     Active Substance: OXYGEN
     Dosage: 13L/MIN, 8L/MIN
     Route: 055
     Dates: start: 20201206
  29. OXYGEN. [Concomitant]
     Active Substance: OXYGEN
     Dosage: 1.5 L/MIN
     Route: 055
     Dates: start: 20201226
  30. PRISTIQ EXTENDED?RELEASE [Concomitant]
     Active Substance: DESVENLAFAXINE SUCCINATE
     Indication: DEPRESSION
     Dates: start: 20201020

REACTIONS (1)
  - Pneumothorax [Recovered/Resolved]

NARRATIVE: CASE EVENT DATE: 20201215
